FAERS Safety Report 7508752-9 (Version None)
Quarter: 2011Q2

REPORT INFORMATION
  Report Type: 
  Country: None (occurrence: None)
  Receive Date: 20110527
  Receipt Date: 20101215
  Transmission Date: 20111010
  Serious: No
  Sender: FDA-Public Use
  Company Number: A0899922A

PATIENT
  Age: 15 Year
  Sex: Female

DRUGS (4)
  1. NEBULIZER TREATMENT [Concomitant]
  2. ADVAIR DISKUS 100/50 [Concomitant]
  3. VENTOLIN [Suspect]
     Indication: ASTHMA
     Route: 055
     Dates: start: 20080101
  4. SYNTHROID [Concomitant]

REACTIONS (2)
  - PRODUCT QUALITY ISSUE [None]
  - DYSPNOEA [None]
